FAERS Safety Report 4274367-1 (Version None)
Quarter: 2004Q1

REPORT INFORMATION
  Report Type: 
  Country: None (occurrence: None)
  Receive Date: 20040120
  Receipt Date: 20030130
  Transmission Date: 20041129
  Serious: Yes (Hospitalization, Disabling, Other)
  Sender: FDA-Public Use
  Company Number: WAES 0301USA03177

PATIENT
  Age: 38 Year
  Sex: Female
  Weight: 77 kg

DRUGS (22)
  1. [THERAPY UNSPECIFIED] [Concomitant]
     Dates: start: 19980101
  2. TYLENOL [Concomitant]
     Dates: start: 19980101
  3. VICODIN [Concomitant]
  4. ALBUTEROL [Concomitant]
  5. ASPIRIN [Concomitant]
     Indication: PROPHYLAXIS
     Dates: start: 19980117
  6. ASPIRIN [Concomitant]
     Indication: AORTIC VALVE REPLACEMENT
     Dates: start: 19980117
  7. ASPIRIN [Concomitant]
     Indication: PROPHYLAXIS
     Dates: start: 19980117
  8. TENORMIN [Concomitant]
     Indication: HYPERTENSION
     Dates: start: 19980117
  9. TENORMIN [Concomitant]
     Indication: HEART RATE INCREASED
     Dates: start: 19980117
  10. DIGOXIN [Concomitant]
     Dates: start: 19980101
  11. ANZEMET [Concomitant]
  12. VASOTEC [Concomitant]
     Route: 048
     Dates: start: 19980101
  13. ISORDIL [Concomitant]
  14. LOPRESSOR [Concomitant]
     Dates: start: 19980101
  15. NAPROXEN [Concomitant]
     Dates: end: 20020701
  16. NITROSTAT [Concomitant]
     Indication: CHEST PAIN
  17. VIOXX [Suspect]
     Indication: SURGERY
     Route: 048
     Dates: start: 20011101
  18. VIOXX [Suspect]
     Indication: BACK PAIN
     Route: 048
     Dates: start: 20011101
  19. RESTORIL [Concomitant]
  20. TICLID [Concomitant]
     Dates: start: 19980101
  21. COUMADIN [Suspect]
     Indication: THROMBOSIS
     Dates: start: 19980117
  22. COUMADIN [Suspect]
     Indication: CARDIAC VALVE DISEASE
     Dates: start: 19980117

REACTIONS (31)
  - ABDOMINAL PAIN [None]
  - ACUTE CORONARY SYNDROME [None]
  - ANXIETY [None]
  - BLOOD TRIGLYCERIDES INCREASED [None]
  - CARDIOMEGALY [None]
  - CEREBROVASCULAR ACCIDENT [None]
  - CHEST PAIN [None]
  - CHILLS [None]
  - CHRONIC OBSTRUCTIVE AIRWAYS DISEASE [None]
  - CONTUSION [None]
  - DEAFNESS BILATERAL [None]
  - DYSPNOEA [None]
  - DYSURIA [None]
  - EPISTAXIS [None]
  - FALL [None]
  - GINGIVAL BLEEDING [None]
  - HAEMATOCHEZIA [None]
  - HEART RATE IRREGULAR [None]
  - HYPERTENSION [None]
  - INTERNATIONAL NORMALISED RATIO DECREASED [None]
  - INTERVERTEBRAL DISC PROTRUSION [None]
  - LIMB DISCOMFORT [None]
  - MENSTRUAL DISORDER [None]
  - OEDEMA PERIPHERAL [None]
  - OSTEOARTHRITIS [None]
  - RADICULITIS [None]
  - SILENT MYOCARDIAL INFARCTION [None]
  - SLEEP DISORDER [None]
  - STRESS INCONTINENCE [None]
  - TRANSIENT ISCHAEMIC ATTACK [None]
  - URINARY TRACT INFECTION [None]
